FAERS Safety Report 18635057 (Version 1)
Quarter: 2020Q4

REPORT INFORMATION
  Report Type: Spontaneous
  Country: US (occurrence: US)
  Receive Date: 20201218
  Receipt Date: 20201218
  Transmission Date: 20210114
  Serious: Yes (Hospitalization)
  Sender: FDA-Public Use
  Company Number: None

PATIENT
  Age: 68 Year
  Sex: Male
  Weight: 74.4 kg

DRUGS (20)
  1. ACETAMINOPHEN. [Concomitant]
     Active Substance: ACETAMINOPHEN
  2. CALCIUM [Concomitant]
     Active Substance: CALCIUM
  3. BARACLUDE [Concomitant]
     Active Substance: ENTECAVIR
  4. ATOVAQUONE. [Concomitant]
     Active Substance: ATOVAQUONE
  5. REQUIP [Concomitant]
     Active Substance: ROPINIROLE HYDROCHLORIDE
  6. MAVYRET [Suspect]
     Active Substance: GLECAPREVIR\PIBRENTASVIR
     Indication: HEPATITIS C
     Dosage: ?          OTHER STRENGTH:100/40;?
     Route: 048
     Dates: start: 20190228, end: 20190530
  7. CYCLOSPORINE. [Concomitant]
     Active Substance: CYCLOSPORINE
  8. LOVENOX [Concomitant]
     Active Substance: ENOXAPARIN SODIUM
  9. GABAPENTIN. [Concomitant]
     Active Substance: GABAPENTIN
  10. VALCYTE [Concomitant]
     Active Substance: VALGANCICLOVIR HYDROCHLORIDE
  11. SERTRALINE [Concomitant]
     Active Substance: SERTRALINE HYDROCHLORIDE
  12. MIRALAX [Concomitant]
     Active Substance: POLYETHYLENE GLYCOL 3350
  13. ALENDRONATE [Concomitant]
     Active Substance: ALENDRONATE SODIUM
  14. FERROUS SULFATE. [Concomitant]
     Active Substance: FERROUS SULFATE
  15. TRAZODONE [Concomitant]
     Active Substance: TRAZODONE HYDROCHLORIDE
  16. CELLCEPT [Concomitant]
     Active Substance: MYCOPHENOLATE MOFETIL\MYCOPHENOLATE MOFETIL HYDROCHLORIDE
  17. TAMSULOSIN [Concomitant]
     Active Substance: TAMSULOSIN
  18. HUMULIN N [Concomitant]
     Active Substance: INSULIN HUMAN
  19. VITAMIN D3 [Concomitant]
     Active Substance: CHOLECALCIFEROL
  20. SENNA [Concomitant]
     Active Substance: SENNA LEAF\SENNOSIDES\SENNOSIDES A AND B

REACTIONS (4)
  - Blood alkaline phosphatase increased [None]
  - Hip fracture [None]
  - Femur fracture [None]
  - Fall [None]

NARRATIVE: CASE EVENT DATE: 20190428
